FAERS Safety Report 23948654 (Version 1)
Quarter: 2024Q2

REPORT INFORMATION
  Report Type: Spontaneous
  Country: US (occurrence: US)
  Receive Date: 20240607
  Receipt Date: 20240607
  Transmission Date: 20240715
  Serious: Yes (Other)
  Sender: FDA-Public Use
  Company Number: US-HALEON-2180027

PATIENT
  Age: 83 Year
  Sex: Male

DRUGS (1)
  1. VOLTAREN [Suspect]
     Active Substance: DICLOFENAC SODIUM
     Indication: Arthritis
     Dosage: EXPDATE:20260331
     Dates: start: 20240510, end: 20240531

REACTIONS (4)
  - Gastric haemorrhage [Not Recovered/Not Resolved]
  - Haematochezia [Unknown]
  - Intestinal haemorrhage [Not Recovered/Not Resolved]
  - Product administered at inappropriate site [Unknown]

NARRATIVE: CASE EVENT DATE: 20240510
